FAERS Safety Report 26155444 (Version 1)
Quarter: 2025Q4

REPORT INFORMATION
  Report Type: Other
  Country: EU (occurrence: EU)
  Receive Date: 20251215
  Receipt Date: 20251215
  Transmission Date: 20260117
  Serious: Yes (Hospitalization)
  Sender: ZYDUS PHARM
  Company Number: None

PATIENT

DRUGS (3)
  1. BACLOFEN [Suspect]
     Active Substance: BACLOFEN
     Indication: Muscle spasticity
     Dosage: 60 MILLIGRAM
     Route: 048
     Dates: end: 202511
  2. BACLOFEN [Suspect]
     Active Substance: BACLOFEN
     Dosage: 80 MILLIGRAM
     Route: 048
     Dates: start: 202511, end: 20251108
  3. BACLOFEN [Suspect]
     Active Substance: BACLOFEN
     Dosage: 140 MILLIGRAM
     Route: 048
     Dates: start: 20251109, end: 20251109

REACTIONS (3)
  - Encephalopathy [Recovered/Resolved]
  - Confusional state [Recovered/Resolved]
  - Dysarthria [Recovered/Resolved]

NARRATIVE: CASE EVENT DATE: 20251110
